FAERS Safety Report 24816037 (Version 1)
Quarter: 2025Q1

REPORT INFORMATION
  Report Type: Spontaneous
  Country: US (occurrence: US)
  Receive Date: 20250107
  Receipt Date: 20250107
  Transmission Date: 20250409
  Serious: Yes (Other)
  Sender: NOVARTIS
  Company Number: US-002147023-NVSC2024US247910

PATIENT
  Age: 31 Year
  Sex: Male

DRUGS (5)
  1. CYCLOSPORINE [Suspect]
     Active Substance: CYCLOSPORINE
     Indication: Pyoderma gangrenosum
     Route: 065
  2. PREDNISONE [Suspect]
     Active Substance: PREDNISONE
     Indication: Pyoderma gangrenosum
     Route: 065
  3. TOFACITINIB [Suspect]
     Active Substance: TOFACITINIB
     Indication: Pyoderma gangrenosum
     Route: 065
  4. DAPSONE [Suspect]
     Active Substance: DAPSONE
     Indication: Pyoderma gangrenosum
     Route: 065
  5. SECUKINUMAB [Concomitant]
     Active Substance: SECUKINUMAB
     Indication: Sacroiliitis
     Route: 065

REACTIONS (2)
  - Pyoderma gangrenosum [Unknown]
  - Drug ineffective for unapproved indication [Unknown]
